FAERS Safety Report 16945167 (Version 1)
Quarter: 2019Q4

REPORT INFORMATION
  Report Type: Spontaneous
  Country: US (occurrence: US)
  Receive Date: 20191021
  Receipt Date: 20191021
  Transmission Date: 20200122
  Serious: Yes (Life-Threatening)
  Sender: FDA-Public Use
  Company Number: None

PATIENT
  Age: 52 Year
  Sex: Female
  Weight: 56.25 kg

DRUGS (3)
  1. XIIDRA [Suspect]
     Active Substance: LIFITEGRAST
     Indication: DRY EYE
     Dosage: ?          OTHER STRENGTH:NONE;QUANTITY:1 DROP(S);?
     Route: 047
     Dates: start: 20190730, end: 20191018
  2. PHILIPS COLON HEALTH PROBIOTICS [Concomitant]
  3. NORDIC NATURALS OMEGA 3 [Concomitant]

REACTIONS (4)
  - Pneumonia [None]
  - Eye pain [None]
  - Dry eye [None]
  - Haemorrhage [None]

NARRATIVE: CASE EVENT DATE: 20190922
